FAERS Safety Report 10180314 (Version 2)
Quarter: 2014Q2

REPORT INFORMATION
  Report Type: Spontaneous
  Country: US (occurrence: US)
  Receive Date: 20140519
  Receipt Date: 20140625
  Transmission Date: 20141212
  Serious: Yes (Other)
  Sender: FDA-Public Use
  Company Number: US-AMGEN INC.-USASP2013081930

PATIENT
  Age: 69 Year
  Sex: Female

DRUGS (3)
  1. PROLIA [Suspect]
     Indication: OSTEOPOROSIS POSTMENOPAUSAL
     Dosage: UNK
     Route: 065
     Dates: start: 2011
  2. CALCIUM [Concomitant]
  3. VITAMIN D                          /00107901/ [Concomitant]

REACTIONS (13)
  - Limb malformation [Unknown]
  - Fall [Unknown]
  - Contusion [Unknown]
  - Joint dislocation [Unknown]
  - Ligament rupture [Unknown]
  - Nervous system disorder [Unknown]
  - Weight increased [Unknown]
  - Depression [Unknown]
  - Weight loss poor [Unknown]
  - Impaired work ability [Unknown]
  - Nasopharyngitis [Recovered/Resolved]
  - Asthenia [Unknown]
  - Pain in extremity [Unknown]
